FAERS Safety Report 6607484-9 (Version None)
Quarter: 2010Q1

REPORT INFORMATION
  Report Type: 
  Country: None (occurrence: None)
  Receive Date: 20100217
  Receipt Date: 20100201
  Transmission Date: 20100710
  Serious: No
  Sender: FDA-Public Use
  Company Number: WSDF_00097

PATIENT
  Age: 23 Year
  Sex: Female
  Weight: 50 kg

DRUGS (13)
  1. WINRHO SDF [Suspect]
     Indication: PROPHYLAXIS AGAINST RH ISOIMMUNISATION
     Dosage: 180 ?G/KG INTRAVENOUS (NOT OTHERWISE SPECIFIED)
     Route: 042
     Dates: start: 19981228, end: 19981229
  2. PRILOSEC [Concomitant]
  3. CEFAZOLIN [Concomitant]
  4. FAMOTIDINE [Concomitant]
  5. APAP TAB [Concomitant]
  6. FENTANYL [Concomitant]
  7. CALCIUM GLUCONATE [Concomitant]
  8. LORAZEPAM [Concomitant]
  9. MAGNESIUM SULFATE [Concomitant]
  10. POTASSIUM CHLORIDE [Concomitant]
  11. POTASSIUM DIHYDROGEN PHOSPHATE [Concomitant]
  12. HALDOL [Concomitant]
  13. VECURONIUM [Concomitant]

REACTIONS (4)
  - BLOOD URINE [None]
  - HAEMOLYSIS [None]
  - INFUSION RELATED REACTION [None]
  - JAUNDICE [None]
